FAERS Safety Report 25123517 (Version 1)
Quarter: 2025Q1

REPORT INFORMATION
  Report Type: Spontaneous
  Country: US (occurrence: US)
  Receive Date: 20250326
  Receipt Date: 20250326
  Transmission Date: 20250409
  Serious: No
  Sender: GRIFOLS
  Company Number: US-IGSA-BIG0030035

PATIENT
  Sex: Female
  Weight: 40 kg

DRUGS (15)
  1. PROLASTIN-C LIQUID [Suspect]
     Active Substance: .ALPHA.1-PROTEINASE INHIBITOR HUMAN
     Indication: Alpha-1 antitrypsin deficiency
     Route: 042
  2. OXYGEN [Concomitant]
     Active Substance: OXYGEN
     Dosage: UNK UNK, QD
  3. ASPIRIN [Concomitant]
     Active Substance: ASPIRIN
  4. PYRIDOXINE [Concomitant]
     Active Substance: PYRIDOXINE
  5. VITAMIN B12 [Concomitant]
     Active Substance: CYANOCOBALAMIN
  6. COCONUT OIL [Concomitant]
     Active Substance: COCONUT OIL
     Route: 061
  7. VITAMIN E [Concomitant]
     Active Substance: .ALPHA.-TOCOPHEROL
  8. BREATHE EASY [EUCALYPTUS GLOBULUS OIL] [Concomitant]
  9. EPINEPHRINE [Concomitant]
     Active Substance: EPINEPHRINE
  10. DEXTROSE\SODIUM CHLORIDE [Concomitant]
     Active Substance: DEXTROSE\SODIUM CHLORIDE
  11. FLUTICASONE PROPIONATE [Concomitant]
     Active Substance: FLUTICASONE PROPIONATE
  12. BUDESONIDE [Concomitant]
     Active Substance: BUDESONIDE
  13. IPRATROPIUM BROMIDE AND ALBUTEROL SULFATE [Concomitant]
     Active Substance: ALBUTEROL SULFATE\IPRATROPIUM BROMIDE
  14. NICOTINE [Concomitant]
     Active Substance: NICOTINE
  15. PREDNISONE [Concomitant]
     Active Substance: PREDNISONE

REACTIONS (2)
  - Pneumonia [Unknown]
  - Dehydration [Unknown]
